FAERS Safety Report 17764230 (Version 1)
Quarter: 2020Q2

REPORT INFORMATION
  Report Type: Spontaneous
  Country: CA (occurrence: CA)
  Receive Date: 20200511
  Receipt Date: 20200511
  Transmission Date: 20200714
  Serious: Yes (Hospitalization)
  Sender: FDA-Public Use
  Company Number: CA-ROCHE-2595103

PATIENT
  Age: 66 Year
  Sex: Female

DRUGS (32)
  1. VENETOCLAX. [Suspect]
     Active Substance: VENETOCLAX
     Indication: NON-HODGKIN^S LYMPHOMA
     Route: 048
  2. MELATONIN [Concomitant]
     Active Substance: MELATONIN
  3. RITUXAN [Suspect]
     Active Substance: RITUXIMAB
     Indication: NON-HODGKIN^S LYMPHOMA
     Route: 042
  4. COLACE [Concomitant]
     Active Substance: DOCUSATE SODIUM
  5. LAX-A-DAY [Concomitant]
  6. SYNTHROID [Concomitant]
     Active Substance: LEVOTHYROXINE SODIUM
  7. DOXORUBICIN HYDROCHLORIDE. [Suspect]
     Active Substance: DOXORUBICIN HYDROCHLORIDE
     Indication: NON-HODGKIN^S LYMPHOMA
     Route: 042
  8. VINCRISTINE SULFATE. [Suspect]
     Active Substance: VINCRISTINE SULFATE
     Indication: NON-HODGKIN^S LYMPHOMA
     Route: 042
  9. ALLEVYN [Concomitant]
  10. CLARITIN [Concomitant]
     Active Substance: LORATADINE
  11. DEXILANT [Concomitant]
     Active Substance: DEXLANSOPRAZOLE
  12. FLOVENT [Concomitant]
     Active Substance: FLUTICASONE PROPIONATE
  13. XARELTO [Concomitant]
     Active Substance: RIVAROXABAN
  14. PROCYTOX [Suspect]
     Active Substance: CYCLOPHOSPHAMIDE
     Indication: NON-HODGKIN^S LYMPHOMA
     Dosage: 2000MG/VIAL
     Route: 042
  15. ALMAGEL [ALUMINIUM HYDROXIDE;MAGNESIUM HYDROXIDE] [Concomitant]
     Active Substance: ALUMINUM HYDROXIDE\MAGNESIUM HYDROXIDE
  16. ANCEF [Concomitant]
     Active Substance: CEFAZOLIN SODIUM
  17. ONDANSETRON [Concomitant]
     Active Substance: ONDANSETRON
  18. SERAX [OXAZEPAM] [Concomitant]
  19. ACETAMINOPHEN. [Concomitant]
     Active Substance: ACETAMINOPHEN
  20. BENADRYL [Concomitant]
     Active Substance: DIPHENHYDRAMINE HYDROCHLORIDE
  21. BISOPROLOL [Concomitant]
     Active Substance: BISOPROLOL
  22. NEUPOGEN [Concomitant]
     Active Substance: FILGRASTIM
  23. TYLENOL [Concomitant]
     Active Substance: ACETAMINOPHEN
  24. VENTOLIN [Concomitant]
     Active Substance: ALBUTEROL SULFATE
  25. DILAUDID [Concomitant]
     Active Substance: HYDROMORPHONE HYDROCHLORIDE
  26. DILTIAZEM. [Concomitant]
     Active Substance: DILTIAZEM
  27. LANOXIN [Concomitant]
     Active Substance: DIGOXIN
  28. STEMETIL [PROCHLORPERAZINE] [Concomitant]
     Active Substance: PROCHLORPERAZINE
  29. PREDNISONE. [Suspect]
     Active Substance: PREDNISONE
     Indication: NON-HODGKIN^S LYMPHOMA
     Route: 048
  30. CELEXA [Concomitant]
     Active Substance: CITALOPRAM HYDROBROMIDE
  31. IMODIUM [Concomitant]
     Active Substance: LOPERAMIDE HYDROCHLORIDE
  32. NYSTATIN. [Concomitant]
     Active Substance: NYSTATIN

REACTIONS (4)
  - Condition aggravated [Recovered/Resolved]
  - Hypersensitivity [Recovered/Resolved]
  - Pneumonia [Recovered/Resolved]
  - Pleural effusion [Recovered/Resolved]
